FAERS Safety Report 9258874 (Version 1)
Quarter: 2013Q2

REPORT INFORMATION
  Report Type: Spontaneous
  Country: US (occurrence: US)
  Receive Date: 20130426
  Receipt Date: 20130426
  Transmission Date: 20140414
  Serious: Yes (Hospitalization)
  Sender: FDA-Public Use
  Company Number: US-BAYER-2013-051709

PATIENT
  Age: 45 Year
  Sex: Female

DRUGS (9)
  1. YAZ [Suspect]
  2. YASMIN [Suspect]
  3. OCELLA [Suspect]
  4. NORMAL SALINE [Concomitant]
     Dosage: 1 L, UNK
     Route: 042
     Dates: start: 20100821
  5. FLUOXETINE [Concomitant]
     Dosage: 10 MG A DAY
  6. OMEPRAZOLE [Concomitant]
     Dosage: 40 MG A DAY
  7. ALPRAZOLAM [Concomitant]
     Dosage: 0.5 MG, TID
  8. ACIDOPHILUS [Concomitant]
  9. VICTOZA [Concomitant]
     Indication: DYSPNOEA
     Dosage: TAKEN COUPLE OF DAYS BEFORE HOSPITALIZATION FOR SHORTNESS OF BREATH
     Dates: start: 201010

REACTIONS (2)
  - Pulmonary embolism [Recovered/Resolved]
  - Deep vein thrombosis [Recovering/Resolving]
